FAERS Safety Report 5082385-9 (Version None)
Quarter: 2006Q3

REPORT INFORMATION
  Report Type: 
  Country: None (occurrence: None)
  Receive Date: 20060814
  Receipt Date: 20060731
  Transmission Date: 20061208
  Serious: Yes (Other)
  Sender: FDA-Public Use
  Company Number: 2006096500

PATIENT
  Age: 33 Year
  Sex: Female
  Weight: 48.5349 kg

DRUGS (3)
  1. CORTEF [Suspect]
     Indication: ADDISON'S DISEASE
     Dosage: 20 MG (2 IN 1 D)
     Dates: start: 20040201
  2. FLORINEF [Suspect]
     Indication: DRUG USE FOR UNKNOWN INDICATION
  3. SYNTHROID [Concomitant]

REACTIONS (4)
  - BLOOD ELECTROLYTES DECREASED [None]
  - CAESAREAN SECTION [None]
  - DRUG EXPOSURE DURING PREGNANCY [None]
  - PREGNANCY [None]
